FAERS Safety Report 9162514 (Version 1)
Quarter: 2013Q1

REPORT INFORMATION
  Report Type: Spontaneous
  Country: JP (occurrence: None)
  Receive Date: 20130215
  Receipt Date: 20130215
  Transmission Date: 20140127
  Serious: Yes (Hospitalization, Other)
  Sender: FDA-Public Use
  Company Number: 2013P1002009

PATIENT
  Age: 34 Year
  Sex: Female

DRUGS (2)
  1. CLINDAMYCIN [Suspect]
     Indication: PROPHYLAXIS
     Dosage: 1.6 UG/ML;X1; TOP
     Route: 048
  2. CLINDAMYCIN [Suspect]
     Indication: SKIN TEST
     Dosage: 1.6 UG/ML;X1; TOP
     Route: 048

REACTIONS (3)
  - Drug reaction with eosinophilia and systemic symptoms [None]
  - Drug reaction with eosinophilia and systemic symptoms [None]
  - Skin test positive [None]
